FAERS Safety Report 12673963 (Version 1)
Quarter: 2016Q3

REPORT INFORMATION
  Report Type: Report from Study
  Country: CN (occurrence: CN)
  Receive Date: 20160822
  Receipt Date: 20160822
  Transmission Date: 20161109
  Serious: Yes (Hospitalization)
  Sender: FDA-Public Use
  Company Number: CN-PFIZER INC-2016389929

PATIENT
  Age: 57 Year
  Sex: Female
  Weight: 69 kg

DRUGS (4)
  1. AROMASIN [Suspect]
     Active Substance: EXEMESTANE
     Indication: BREAST CANCER
     Dosage: 25 MG, 1X/DAY
     Route: 048
     Dates: start: 20150816, end: 20150816
  2. AROMASIN [Suspect]
     Active Substance: EXEMESTANE
     Dosage: 25 MG, 1X/DAY
     Route: 048
     Dates: start: 20150819, end: 20151119
  3. CHIDAMIDE [Suspect]
     Active Substance: TUCIDINOSTAT
     Indication: BREAST CANCER
     Dosage: 30 MG, DAILY
     Route: 048
     Dates: start: 20150815, end: 20150815
  4. CHIDAMIDE [Suspect]
     Active Substance: TUCIDINOSTAT
     Dosage: 30 MG, 2X/WEEK
     Route: 048
     Dates: start: 20150819, end: 20151119

REACTIONS (1)
  - Platelet count decreased [Recovered/Resolved]

NARRATIVE: CASE EVENT DATE: 20151120
